FAERS Safety Report 14124000 (Version 14)
Quarter: 2018Q3

REPORT INFORMATION
  Report Type: Spontaneous
  Country: ES (occurrence: ES)
  Receive Date: 20171025
  Receipt Date: 20180724
  Transmission Date: 20181010
  Serious: Yes (Hospitalization, Other)
  Sender: FDA-Public Use
  Company Number: ES-PFIZER INC-2017457837

PATIENT
  Age: 32 Year
  Sex: Female
  Weight: 100 kg

DRUGS (13)
  1. ALANERV [Concomitant]
     Active Substance: DIETARY SUPPLEMENT
     Dosage: UNK
  2. MESALAZINE [Suspect]
     Active Substance: MESALAMINE
     Indication: COLITIS ULCERATIVE
     Dosage: UNK
     Route: 054
     Dates: start: 200909
  3. MESALAZINE [Suspect]
     Active Substance: MESALAMINE
     Dosage: UNK, DAILY
     Route: 048
     Dates: start: 200710, end: 201006
  4. IMUREL [Suspect]
     Active Substance: AZATHIOPRINE SODIUM
     Dosage: 4 TABLETS (DF), ONCE DAILY (QD)
     Dates: start: 201006
  5. MESALAZINE [Suspect]
     Active Substance: MESALAMINE
     Indication: COLITIS ULCERATIVE
     Dosage: UNK
     Route: 054
     Dates: start: 200710, end: 200909
  6. IMUREL [Suspect]
     Active Substance: AZATHIOPRINE SODIUM
     Dosage: 1 TABLET (DF), ONCE DAILY (QD)
  7. SALOFALK [Suspect]
     Active Substance: MESALAMINE
     Indication: COLITIS ULCERATIVE
     Dosage: UNK
     Dates: start: 201006
  8. LYRICA [Suspect]
     Active Substance: PREGABALIN
     Indication: BACK PAIN
     Dosage: UNK
     Dates: start: 200903
  9. PENTASA [Suspect]
     Active Substance: MESALAMINE
     Indication: COLITIS ULCERATIVE
     Dosage: UNK
     Route: 048
     Dates: start: 200710, end: 201006
  10. IMUREL [Suspect]
     Active Substance: AZATHIOPRINE SODIUM
     Indication: COLITIS ULCERATIVE
     Dosage: UNK, ONCE DAILY AT BREAKFAST
     Dates: start: 200903
  11. CLIPPER [Suspect]
     Active Substance: BECLOMETHASONE DIPROPIONATE
     Indication: COLITIS ULCERATIVE
     Dosage: UNK
     Dates: start: 200812
  12. IMUREL [Suspect]
     Active Substance: AZATHIOPRINE SODIUM
     Dosage: 1 DF, 1X/DAY AT LUNCH
  13. PENTASA [Suspect]
     Active Substance: MESALAMINE
     Indication: COLITIS ULCERATIVE
     Dosage: UNK
     Route: 054
     Dates: start: 200710, end: 200909

REACTIONS (12)
  - Atypical haemolytic uraemic syndrome [Recovered/Resolved]
  - Condition aggravated [Unknown]
  - Fatigue [Unknown]
  - Hypertension [Unknown]
  - Colitis ulcerative [Unknown]
  - Dizziness [Unknown]
  - Malaise [Recovered/Resolved]
  - Pancreatitis acute [Unknown]
  - Product use in unapproved indication [Unknown]
  - Thrombocytopenic purpura [Recovered/Resolved]
  - Nausea [Unknown]
  - Weight increased [Unknown]

NARRATIVE: CASE EVENT DATE: 200903
